FAERS Safety Report 6886445-9 (Version None)
Quarter: 2010Q3

REPORT INFORMATION
  Report Type: 
  Country: None (occurrence: None)
  Receive Date: 20100729
  Receipt Date: 20090526
  Transmission Date: 20110219
  Serious: No
  Sender: FDA-Public Use
  Company Number: US-PFIZER INC-2009197979

PATIENT
  Sex: Male

DRUGS (4)
  1. CELEBREX [Suspect]
     Indication: OSTEOARTHRITIS
     Dosage: UNK
  2. IBUPROFEN [Suspect]
     Indication: OSTEOARTHRITIS
     Dosage: UNK
  3. CORTIZONE [Concomitant]
     Indication: OSTEOARTHRITIS
  4. HYALURONIC ACID [Concomitant]
     Indication: OSTEOARTHRITIS

REACTIONS (1)
  - GASTRIC DISORDER [None]
